FAERS Safety Report 26187022 (Version 1)
Quarter: 2025Q4

REPORT INFORMATION
  Report Type: Spontaneous
  Country: TH (occurrence: TH)
  Receive Date: 20251222
  Receipt Date: 20251222
  Transmission Date: 20260117
  Serious: Yes (Hospitalization)
  Sender: ROCHE
  Company Number: TH-ROCHE-10000464388

PATIENT
  Age: 80 Year
  Sex: Male

DRUGS (3)
  1. ATEZOLIZUMAB [Suspect]
     Active Substance: ATEZOLIZUMAB
     Indication: Small cell lung cancer
  2. CARBOPLATIN [Suspect]
     Active Substance: CARBOPLATIN
     Indication: Small cell lung cancer
  3. ETOPOSIDE [Suspect]
     Active Substance: ETOPOSIDE
     Indication: Small cell lung cancer

REACTIONS (6)
  - Fatigue [Unknown]
  - Oropharyngeal pain [Unknown]
  - Odynophagia [Unknown]
  - Dysphonia [Recovered/Resolved]
  - Dyspnoea exertional [Unknown]
  - Haemoptysis [Unknown]
